FAERS Safety Report 5701026-8 (Version None)
Quarter: 2008Q2

REPORT INFORMATION
  Report Type: 
  Country: None (occurrence: None)
  Receive Date: 20080410
  Receipt Date: 20080331
  Transmission Date: 20081010
  Serious: Yes (Other)
  Sender: FDA-Public Use
  Company Number: GB-WYE-H03493908

PATIENT
  Age: 77 Year
  Sex: Male

DRUGS (7)
  1. CORDARONE [Suspect]
     Indication: EXTRASYSTOLES
     Route: 048
     Dates: start: 20070520, end: 20080214
  2. ATORVASTATIN [Concomitant]
     Indication: MYOCARDIAL ISCHAEMIA
     Route: 048
     Dates: start: 20070413
  3. OMEPRAZOLE [Concomitant]
     Indication: OESOPHAGEAL DISORDER
     Route: 048
     Dates: start: 20041101
  4. COLOFAC [Concomitant]
     Indication: ABDOMINAL PAIN
     Route: 048
     Dates: start: 20061120
  5. FELODIPINE [Concomitant]
     Indication: HYPERTENSION
     Route: 048
     Dates: start: 20050808
  6. ASPIRIN [Concomitant]
     Indication: MYOCARDIAL ISCHAEMIA
     Route: 048
     Dates: start: 20030908
  7. CANDESARTAN CILEXETIL [Concomitant]
     Indication: HYPERTENSION
     Route: 048
     Dates: start: 20021015

REACTIONS (4)
  - DIZZINESS [None]
  - THYROXINE FREE INCREASED [None]
  - TREMOR [None]
  - WEIGHT DECREASED [None]
